FAERS Safety Report 4854339-6 (Version None)
Quarter: 2005Q4

REPORT INFORMATION
  Report Type: 
  Country: None (occurrence: None)
  Receive Date: 20051213
  Receipt Date: 20051213
  Transmission Date: 20060501
  Serious: Yes (Life-Threatening)
  Sender: FDA-Public Use
  Company Number: None

PATIENT
  Sex: Female
  Weight: 79.5 kg

DRUGS (4)
  1. CYTOTEC [Suspect]
     Indication: CAESAREAN SECTION
     Dosage: 400 MCG  Q6H X 4 DOSES  PO
     Route: 048
     Dates: start: 20051206, end: 20051207
  2. CYTOTEC [Suspect]
     Indication: POST PROCEDURAL HAEMORRHAGE
     Dosage: 400 MCG  Q6H X 4 DOSES  PO
     Route: 048
     Dates: start: 20051206, end: 20051207
  3. AMPICILLIN SODIUM [Concomitant]
  4. GENTAMICIN [Concomitant]

REACTIONS (7)
  - BLOOD PRESSURE SYSTOLIC DECREASED [None]
  - BODY TEMPERATURE DECREASED [None]
  - DYSPNOEA [None]
  - HYPOTENSION [None]
  - OXYGEN SATURATION DECREASED [None]
  - TACHYCARDIA [None]
  - TREMOR [None]
